FAERS Safety Report 10192281 (Version 1)
Quarter: 2014Q2

REPORT INFORMATION
  Report Type: Spontaneous
  Country: NL (occurrence: NL)
  Receive Date: 20140523
  Receipt Date: 20140523
  Transmission Date: 20141212
  Serious: Yes (Hospitalization)
  Sender: FDA-Public Use
  Company Number: PHHY2014NL062403

PATIENT
  Sex: Female

DRUGS (4)
  1. DICLOFENAC [Suspect]
     Indication: CONTUSION
  2. DIAZEPAM [Suspect]
     Indication: CONTUSION
  3. METOCLOPRAMIDE [Concomitant]
  4. OESTROGEN [Concomitant]
     Indication: PREMATURE MENOPAUSE

REACTIONS (5)
  - General physical health deterioration [Unknown]
  - Somnolence [Unknown]
  - Dyspnoea [Unknown]
  - Muscular weakness [Unknown]
  - Dry mouth [Unknown]
